FAERS Safety Report 10203680 (Version 1)
Quarter: 2014Q2

REPORT INFORMATION
  Report Type: Report from Study
  Country: CA (occurrence: CA)
  Receive Date: 20140529
  Receipt Date: 20140529
  Transmission Date: 20141212
  Serious: Yes (Other)
  Sender: FDA-Public Use
  Company Number: CA-JNJFOC-20140513906

PATIENT
  Sex: Female
  Weight: 56.8 kg

DRUGS (7)
  1. REMICADE [Suspect]
     Indication: RHEUMATOID ARTHRITIS
     Route: 042
     Dates: start: 20131125
  2. FOLIC ACID [Concomitant]
     Route: 065
  3. ZOPICLONE [Concomitant]
     Route: 065
  4. CELEBREX [Concomitant]
     Route: 065
  5. METHOTREXATE [Concomitant]
     Route: 065
  6. VITAMIN D [Concomitant]
     Route: 065
  7. METAMUCIL [Concomitant]
     Route: 065

REACTIONS (1)
  - Haemorrhoids [Unknown]
